FAERS Safety Report 4957293-1 (Version None)
Quarter: 2006Q1

REPORT INFORMATION
  Report Type: 
  Country: None (occurrence: None)
  Receive Date: 20060323
  Receipt Date: 20060307
  Transmission Date: 20060701
  Serious: Yes (Hospitalization, Other)
  Sender: FDA-Public Use
  Company Number: US200601005097

PATIENT
  Age: 53 Year
  Sex: Male
  Weight: 118.8 kg

DRUGS (16)
  1. ZYPREXA [Suspect]
     Indication: ANXIETY
     Dosage: 10 MG EACH EVENING, ORAL
     Route: 048
     Dates: start: 20010518, end: 20010901
  2. DIAZEPAM [Concomitant]
  3. PAXIL [Concomitant]
  4. ZESTORETIC                    (HYDROCHLOROTHIAZIDE, LISINOPRIL DIHYDRA [Concomitant]
  5. INDOMETHACIN [Concomitant]
  6. CLONAZEPAM [Concomitant]
  7. HYDROCHLOROTHIAZIDE [Concomitant]
  8. LISINOPRIL [Concomitant]
  9. PNEUMOVAX 23 [Concomitant]
  10. ASPIRIN [Concomitant]
  11. ALEVE [Concomitant]
  12. TENORMIN [Concomitant]
  13. ACIPHEX [Concomitant]
  14. OMEPRAZOLE [Concomitant]
  15. NAPROXEN [Concomitant]
  16. NIACIN [Concomitant]

REACTIONS (19)
  - ALANINE AMINOTRANSFERASE INCREASED [None]
  - ANAL FISTULA [None]
  - ANORECTAL CELLULITIS [None]
  - ASPARTATE AMINOTRANSFERASE INCREASED [None]
  - BLOOD PRESSURE INCREASED [None]
  - CYST [None]
  - DIABETES MELLITUS INADEQUATE CONTROL [None]
  - DIABETES MELLITUS NON-INSULIN-DEPENDENT [None]
  - DISCOMFORT [None]
  - ENTEROCOCCAL INFECTION [None]
  - ESCHERICHIA INFECTION [None]
  - FURUNCLE [None]
  - GLYCOSYLATED HAEMOGLOBIN INCREASED [None]
  - HYPERLIPIDAEMIA [None]
  - HYPERTRIGLYCERIDAEMIA [None]
  - LIVER FUNCTION TEST ABNORMAL [None]
  - LOW DENSITY LIPOPROTEIN INCREASED [None]
  - PNEUMONIA KLEBSIELLA [None]
  - WEIGHT INCREASED [None]
